FAERS Safety Report 11151650 (Version 1)
Quarter: 2015Q2

REPORT INFORMATION
  Report Type: Spontaneous
  Country: US (occurrence: None)
  Receive Date: 20150528
  Receipt Date: 20150528
  Transmission Date: 20150821
  Serious: Yes (Hospitalization)
  Sender: FDA-Public Use
  Company Number: BB15-136-AE

PATIENT
  Sex: Male

DRUGS (3)
  1. CLORAZEPATE [Concomitant]
     Active Substance: CLORAZEPATE DIPOTASSIUM
  2. PAXIL [Concomitant]
     Active Substance: PAROXETINE HYDROCHLORIDE
  3. LORAZEPAM. [Suspect]
     Active Substance: LORAZEPAM
     Dosage: ORAL
     Route: 048

REACTIONS (9)
  - Aggression [None]
  - Impulsive behaviour [None]
  - Drug withdrawal syndrome [None]
  - Libido decreased [None]
  - Crime [None]
  - Delinquency [None]
  - Imprisonment [None]
  - Alcohol use [None]
  - Anger [None]

NARRATIVE: CASE EVENT DATE: 1990
